FAERS Safety Report 21114187 (Version 1)
Quarter: 2022Q3

REPORT INFORMATION
  Report Type: Spontaneous
  Country: US (occurrence: None)
  Receive Date: 20220721
  Receipt Date: 20220721
  Transmission Date: 20221026
  Serious: No
  Sender: FDA-Public Use
  Company Number: None

PATIENT

DRUGS (1)
  1. DROPERIDOL [Suspect]
     Active Substance: DROPERIDOL
     Dosage: OTHER FREQUENCY : SINGLE DOSE VIAL;?OTHER ROUTE : IV OR IM;?
     Route: 050

REACTIONS (1)
  - Expired product administered [None]
